FAERS Safety Report 9806725 (Version 1)
Quarter: 2014Q1

REPORT INFORMATION
  Report Type: Spontaneous
  Country: US (occurrence: US)
  Receive Date: 20140109
  Receipt Date: 20140109
  Transmission Date: 20141002
  Serious: No
  Sender: FDA-Public Use
  Company Number: US-ENDO PHARMACEUTICALS INC.-FORT20130361

PATIENT
  Age: 51 Year
  Sex: Male

DRUGS (2)
  1. FORTESTA [Suspect]
     Indication: HORMONE REPLACEMENT THERAPY
     Route: 061
     Dates: start: 201307, end: 201308
  2. FORTESTA [Suspect]
     Route: 061
     Dates: start: 201309

REACTIONS (3)
  - Application site pain [Recovered/Resolved]
  - Application site erythema [Recovering/Resolving]
  - Application site irritation [Recovering/Resolving]
